FAERS Safety Report 24619553 (Version 1)
Quarter: 2024Q4

REPORT INFORMATION
  Report Type: Spontaneous
  Country: US (occurrence: US)
  Receive Date: 20241114
  Receipt Date: 20241114
  Transmission Date: 20250115
  Serious: No
  Sender: CURRAX PHARMACEUTICALS
  Company Number: US-CURRAX PHARMACEUTICALS LLC-US-2024CUR000740

PATIENT
  Age: 52 Year
  Sex: Female

DRUGS (6)
  1. CONTRAVE [Suspect]
     Active Substance: BUPROPION HYDROCHLORIDE\NALTREXONE HYDROCHLORIDE
     Indication: Weight control
     Dosage: STRENGTH: 8/90 MG, ONE TABLET EVERY AM
     Route: 065
     Dates: start: 20231109, end: 20231115
  2. CONTRAVE [Suspect]
     Active Substance: BUPROPION HYDROCHLORIDE\NALTREXONE HYDROCHLORIDE
     Indication: Food craving
     Dosage: STRENGTH: 8/90 MG, ONE AM/ ONE PM
     Route: 065
     Dates: start: 20231116, end: 20231122
  3. CONTRAVE [Suspect]
     Active Substance: BUPROPION HYDROCHLORIDE\NALTREXONE HYDROCHLORIDE
     Indication: Decreased appetite
     Dosage: STRENGTH: 8/90 MG, TWO AM/ ONE PM
     Route: 065
     Dates: start: 20231123, end: 20231129
  4. CONTRAVE [Suspect]
     Active Substance: BUPROPION HYDROCHLORIDE\NALTREXONE HYDROCHLORIDE
     Dosage: STRENGTH: 8/90 MG, 4 TABLETS DAILY (2 TABLETS AT ABOUT 7AM AND 6 PM)/ TWO AM/ TWO PM, 2 PILLS AT 7:2
     Route: 065
     Dates: start: 20231130
  5. CONTRAVE [Suspect]
     Active Substance: BUPROPION HYDROCHLORIDE\NALTREXONE HYDROCHLORIDE
     Dosage: STRENGTH: 8/90 MG, ONE TABLET AT 7:30 AM, 10:30 AM, 1:30 PM AND 4:30 PM.
     Route: 065
     Dates: start: 20240306
  6. CITALOPRAM [Concomitant]
     Active Substance: CITALOPRAM
     Indication: Anxiety
     Dosage: UNK
     Dates: start: 2007

REACTIONS (2)
  - Drug ineffective [Unknown]
  - Inappropriate schedule of product administration [Unknown]

NARRATIVE: CASE EVENT DATE: 20231109
